FAERS Safety Report 10634086 (Version 1)
Quarter: 2014Q4

REPORT INFORMATION
  Report Type: Spontaneous
  Country: US (occurrence: None)
  Receive Date: 20141203
  Receipt Date: 20141203
  Transmission Date: 20150529
  Serious: Yes (Hospitalization)
  Sender: FDA-Public Use
  Company Number: 20140765

PATIENT
  Sex: Female

DRUGS (1)
  1. VENOFER [Suspect]
     Active Substance: IRON SUCROSE
     Indication: PRODUCT USED FOR UNKNOWN INDICATION
     Dosage: OVER 1 HOUR
     Route: 042
     Dates: start: 20141114, end: 20141121

REACTIONS (5)
  - Syncope [None]
  - Pain [None]
  - Hypoacusis [None]
  - Chest discomfort [None]
  - Feeling abnormal [None]

NARRATIVE: CASE EVENT DATE: 20141114
